FAERS Safety Report 6043320-X (Version None)
Quarter: 2009Q1

REPORT INFORMATION
  Report Type: 
  Country: None (occurrence: None)
  Receive Date: 20090115
  Receipt Date: 20090105
  Transmission Date: 20090719
  Serious: Yes (Life-Threatening)
  Sender: FDA-Public Use
  Company Number: 1-16885849

PATIENT
  Age: 89 Year
  Sex: Male
  Weight: 90.7194 kg

DRUGS (2)
  1. WARFARIN SODIUM [Suspect]
     Indication: CARDIAC PACEMAKER INSERTION
     Dosage: ORAL
     Route: 048
     Dates: start: 20020601
  2. MULTIPLE UNSPECIFIED MEDICATIONS [Concomitant]

REACTIONS (6)
  - B-CELL LYMPHOMA RECURRENT [None]
  - DEMENTIA [None]
  - HAEMATURIA [None]
  - NO THERAPEUTIC RESPONSE [None]
  - RASH ERYTHEMATOUS [None]
  - SKIN CANCER [None]
